FAERS Safety Report 7199991-8 (Version None)
Quarter: 2010Q4

REPORT INFORMATION
  Report Type: 
  Country: None (occurrence: None)
  Receive Date: 20101228
  Receipt Date: 20101015
  Transmission Date: 20110411
  Serious: No
  Sender: FDA-Public Use
  Company Number: US-MYLANLABS-2010S1019216

PATIENT
  Age: 53 Year
  Sex: Female
  Weight: 79.38 kg

DRUGS (7)
  1. TOPIRAMATE [Suspect]
     Indication: EPILEPSY
     Route: 048
     Dates: start: 20100901, end: 20101008
  2. TOPIRAMATE [Suspect]
     Route: 048
     Dates: start: 20101008
  3. TRILEPTAL [Concomitant]
     Indication: EPILEPSY
     Dates: start: 20070101
  4. LIPITOR [Concomitant]
     Indication: BLOOD CHOLESTEROL INCREASED
     Dates: start: 20070101
  5. ZYPREXA [Concomitant]
     Indication: DEPRESSION
  6. LEXAPRO [Concomitant]
     Indication: DEPRESSION
     Dates: start: 20070101
  7. ASPIRIN [Concomitant]
     Dates: start: 20070101

REACTIONS (1)
  - COUGH [None]
